FAERS Safety Report 20801321 (Version 1)
Quarter: 2022Q2

REPORT INFORMATION
  Report Type: Spontaneous
  Country: CN (occurrence: CN)
  Receive Date: 20220509
  Receipt Date: 20220509
  Transmission Date: 20220720
  Serious: Yes (Other)
  Sender: FDA-Public Use
  Company Number: CN-BoehringerIngelheim-2022-BI-168164

PATIENT
  Age: 83 Year
  Sex: Male
  Weight: 70 kg

DRUGS (5)
  1. ALTEPLASE [Suspect]
     Active Substance: ALTEPLASE
     Indication: Cerebral infarction
     Dosage: MOST RECENT DOSE ADMINISTERED ON 15/APR/2022
     Route: 042
     Dates: start: 20220415
  2. ALTEPLASE [Suspect]
     Active Substance: ALTEPLASE
     Dosage: MOST RECENT DOSE ADMINISTERED ON 15/APR/2022
     Route: 042
     Dates: start: 20220415
  3. STERILIZED WATER FOR INJECTIONS [Concomitant]
     Indication: Vehicle solution use
     Dosage: MOST RECENT DOSE ADMINISTERED ON 15/APR/2022
     Route: 042
     Dates: start: 20220415
  4. STERILIZED WATER FOR INJECTIONS [Concomitant]
     Dosage: MOST RECENT DOSE ADMINISTERED ON 15/APR/2022
     Route: 042
     Dates: start: 20220415
  5. FAMOTIDINE [Concomitant]
     Active Substance: FAMOTIDINE
     Route: 041

REACTIONS (4)
  - Cerebral haemorrhage [Recovering/Resolving]
  - Mouth haemorrhage [Recovering/Resolving]
  - Nausea [Recovering/Resolving]
  - Vomiting [Recovering/Resolving]

NARRATIVE: CASE EVENT DATE: 20220415
